FAERS Safety Report 21322762 (Version 4)
Quarter: 2022Q4

REPORT INFORMATION
  Report Type: Spontaneous
  Country: AU (occurrence: AU)
  Receive Date: 20220912
  Receipt Date: 20221031
  Transmission Date: 20230113
  Serious: Yes (Death, Other)
  Sender: FDA-Public Use
  Company Number: AU-ALXN-A202210700

PATIENT
  Sex: Male

DRUGS (2)
  1. SOLIRIS [Suspect]
     Active Substance: ECULIZUMAB
     Indication: Atypical haemolytic uraemic syndrome
     Dosage: UNK UNK, QW
     Route: 042
     Dates: start: 20220822
  2. AMOXICILLIN [Concomitant]
     Active Substance: AMOXICILLIN
     Indication: Prophylaxis
     Dosage: UNK
     Route: 065

REACTIONS (4)
  - Escherichia bacteraemia [Fatal]
  - Neutropenic sepsis [Fatal]
  - Acute kidney injury [Unknown]
  - Acute pulmonary oedema [Unknown]

NARRATIVE: CASE EVENT DATE: 20220905
